FAERS Safety Report 8970107 (Version 1)
Quarter: 2012Q4

REPORT INFORMATION
  Report Type: Report from Study
  Country: NL (occurrence: NL)
  Receive Date: 20121218
  Receipt Date: 20121218
  Transmission Date: 20130627
  Serious: Yes (Hospitalization)
  Sender: FDA-Public Use
  Company Number: NL-BAXTER-2012BAX027111

PATIENT
  Age: 73 Year
  Sex: Female
  Weight: 60 kg

DRUGS (11)
  1. ENDOXAN I.V., POEDER VOOR OPLOSSING VOOR INJECTIE 200, 500, 1000 MG [Suspect]
     Indication: DIFFUSE LARGE B-CELL LYMPHOMA
     Route: 042
     Dates: start: 20081106
  2. ENDOXAN I.V., POEDER VOOR OPLOSSING VOOR INJECTIE 200, 500, 1000 MG [Suspect]
     Route: 042
     Dates: start: 20090203
  3. RITUXIMAB [Suspect]
     Indication: DIFFUSE LARGE B-CELL LYMPHOMA
     Route: 042
     Dates: start: 20081106, end: 20090119
  4. RITUXIMAB [Suspect]
     Route: 042
     Dates: start: 20090210
  5. DOXORUBICIN [Suspect]
     Indication: DIFFUSE LARGE B-CELL LYMPHOMA
     Route: 042
     Dates: start: 20081106
  6. DOXORUBICIN [Suspect]
     Route: 042
     Dates: start: 20090203
  7. VINCRISTINE [Suspect]
     Indication: DIFFUSE LARGE B-CELL LYMPHOMA
     Route: 042
     Dates: start: 20081106, end: 20090202
  8. PREDNISONE [Suspect]
     Indication: DIFFUSE LARGE B-CELL LYMPHOMA
     Route: 048
     Dates: start: 20081106, end: 20090116
  9. PREDNISONE [Suspect]
     Route: 048
     Dates: start: 20090201
  10. G-CSF [Suspect]
     Indication: DIFFUSE LARGE B-CELL LYMPHOMA
     Route: 058
     Dates: start: 20081103
  11. VALACICLOVIR [Concomitant]
     Indication: DRUG USE FOR UNKNOWN INDICATION
     Route: 048

REACTIONS (2)
  - Pyrexia [Recovered/Resolved]
  - Cerebellar ataxia [Recovered/Resolved]
